FAERS Safety Report 16783629 (Version 1)
Quarter: 2019Q3

REPORT INFORMATION
  Report Type: Spontaneous
  Country: DE (occurrence: DE)
  Receive Date: 20190908
  Receipt Date: 20190908
  Transmission Date: 20191005
  Serious: Yes (Death, Congenital Anomaly, Other)
  Sender: FDA-Public Use
  Company Number: DE-BIOGEN-2019BI00782895

PATIENT
  Age: 1 Day
  Sex: Male
  Weight: 3.01 kg

DRUGS (1)
  1. TECFIDERA [Suspect]
     Active Substance: DIMETHYL FUMARATE
     Indication: MATERNAL EXPOSURE TIMING UNSPECIFIED
     Dosage: 480 [MG/D ] 2 SEPARATED DOSES
     Route: 064
     Dates: start: 20171122, end: 20171222

REACTIONS (11)
  - Ventricular septal defect [Not Recovered/Not Resolved]
  - Foetal exposure during pregnancy [Unknown]
  - Cryptorchism [Recovered/Resolved]
  - Congenital inguinal hernia [Unknown]
  - Hydrocele [Unknown]
  - Single umbilical artery [Not Recovered/Not Resolved]
  - Exomphalos [Fatal]
  - Transposition of the great vessels [Recovered/Resolved with Sequelae]
  - Death [Fatal]
  - Atrial septal defect [Recovered/Resolved with Sequelae]
  - Patent ductus arteriosus [Recovered/Resolved with Sequelae]

NARRATIVE: CASE EVENT DATE: 20180809
